FAERS Safety Report 6211943-0 (Version None)
Quarter: 2009Q2

REPORT INFORMATION
  Report Type: 
  Country: None (occurrence: None)
  Receive Date: 20090602
  Receipt Date: 20090527
  Transmission Date: 20091009
  Serious: Yes (Other)
  Sender: FDA-Public Use
  Company Number: US-AVENTIS-200912285US

PATIENT
  Sex: Male
  Weight: 67.13 kg

DRUGS (16)
  1. LANTUS [Suspect]
     Indication: TYPE 2 DIABETES MELLITUS
     Route: 058
     Dates: start: 20060101
  2. OPTICLIK (INSULIN INJECTION PEN) [Suspect]
     Indication: TYPE 2 DIABETES MELLITUS
     Dates: start: 20060101
  3. CARVEDILOL [Concomitant]
     Indication: BLOOD PRESSURE
     Dosage: DOSE: UNK
  4. FUROSEMIDE [Concomitant]
  5. OMEPRAZOLE [Concomitant]
     Dosage: DOSE: UNK
  6. FLOMAX [Concomitant]
  7. LEVOTHYROXINE [Concomitant]
     Indication: THYROID DISORDER
     Dosage: DOSE QUANTITY: 0.75
  8. FEXOFENADINE [Concomitant]
  9. ALLOPURINOL [Concomitant]
  10. SERTRALINE HCL [Concomitant]
     Indication: DEPRESSION
  11. CYMBALTA [Concomitant]
     Indication: DEPRESSION
  12. CYMBALTA [Concomitant]
     Indication: HERPES ZOSTER
  13. NORVASC [Concomitant]
     Indication: BLOOD PRESSURE
  14. LEUKERAN [Concomitant]
  15. CONISON [Concomitant]
     Dosage: DOSE: 110-5MG
  16. SIMVASTATIN [Concomitant]

REACTIONS (2)
  - MACULAR DEGENERATION [None]
  - VISUAL ACUITY REDUCED [None]
